FAERS Safety Report 11334790 (Version 8)
Quarter: 2015Q4

REPORT INFORMATION
  Report Type: Spontaneous
  Country: CA (occurrence: CA)
  Receive Date: 20150804
  Receipt Date: 20151223
  Transmission Date: 20160304
  Serious: Yes (Hospitalization, Other)
  Sender: FDA-Public Use
  Company Number: CA-ROCHE-1617522

PATIENT
  Age: 45 Year
  Sex: Female

DRUGS (17)
  1. FERROUS FUMARATE [Concomitant]
     Active Substance: FERROUS FUMARATE
  2. ONGLYZA [Concomitant]
     Active Substance: SAXAGLIPTIN HYDROCHLORIDE
  3. GLICLAZIDE [Concomitant]
     Active Substance: GLICLAZIDE
  4. XOLAIR [Suspect]
     Active Substance: OMALIZUMAB
     Indication: ASTHMA
     Route: 058
     Dates: start: 20150717
  5. THYROXINE [Concomitant]
     Active Substance: LEVOTHYROXINE
  6. NORVASC [Concomitant]
     Active Substance: AMLODIPINE BESYLATE
  7. CRESTOR [Concomitant]
     Active Substance: ROSUVASTATIN CALCIUM
  8. SPIRIVA [Concomitant]
     Active Substance: TIOTROPIUM BROMIDE MONOHYDRATE
  9. BUDESONIDE. [Concomitant]
     Active Substance: BUDESONIDE
  10. METHYLDOPA. [Concomitant]
     Active Substance: METHYLDOPA
  11. NOVOMIX 30 [Concomitant]
     Active Substance: INSULIN ASPART
  12. ZAROXOLYN [Concomitant]
     Active Substance: METOLAZONE
  13. VENTOLIN [Concomitant]
     Active Substance: ALBUTEROL SULFATE
  14. PREDNISONE. [Concomitant]
     Active Substance: PREDNISONE
  15. SINGULAIR [Concomitant]
     Active Substance: MONTELUKAST SODIUM
  16. LASIX [Concomitant]
     Active Substance: FUROSEMIDE
  17. ADVAIR HFA [Concomitant]
     Active Substance: FLUTICASONE PROPIONATE\SALMETEROL XINAFOATE

REACTIONS (6)
  - Forced expiratory volume decreased [Unknown]
  - Sleep disorder [Unknown]
  - Asthma [Unknown]
  - Dyspnoea [Unknown]
  - Forced vital capacity decreased [Unknown]
  - Malaise [Unknown]

NARRATIVE: CASE EVENT DATE: 20151005
